FAERS Safety Report 5113891-6 (Version None)
Quarter: 2006Q3

REPORT INFORMATION
  Report Type: 
  Country: None (occurrence: None)
  Receive Date: 20060921
  Receipt Date: 20060908
  Transmission Date: 20061208
  Serious: Yes (Hospitalization)
  Sender: FDA-Public Use
  Company Number: 2006PV021020

PATIENT
  Age: 73 Year
  Sex: Female

DRUGS (12)
  1. BYETTA [Suspect]
     Indication: DIABETES MELLITUS NON-INSULIN-DEPENDENT
     Dosage: SEE IMAGE
     Route: 058
     Dates: start: 20050901, end: 20051001
  2. BYETTA [Suspect]
     Indication: DIABETES MELLITUS NON-INSULIN-DEPENDENT
     Dosage: SEE IMAGE
     Route: 058
     Dates: start: 20051001, end: 20060324
  3. BYETTA [Suspect]
     Indication: DIABETES MELLITUS NON-INSULIN-DEPENDENT
     Dosage: SEE IMAGE
     Route: 058
     Dates: start: 20060101, end: 20060421
  4. DIGITEK [Concomitant]
  5. IMDUR [Concomitant]
  6. GLUCOPHAGE [Concomitant]
  7. AROMADEX [Concomitant]
  8. LASIX [Concomitant]
  9. DIOVAN [Concomitant]
  10. NIFEREX [Concomitant]
  11. ALDACTONE [Concomitant]
  12. ASPIRIN [Concomitant]

REACTIONS (8)
  - ABDOMINAL PAIN LOWER [None]
  - HEPATIC CIRRHOSIS [None]
  - HEPATIC FIBROSIS [None]
  - HEPATITIS CHRONIC ACTIVE [None]
  - PANCREATIC CARCINOMA [None]
  - PANCREATIC DUCT OBSTRUCTION [None]
  - PANCREATITIS [None]
  - UPPER RESPIRATORY TRACT INFECTION [None]
